FAERS Safety Report 9713429 (Version 2)
Quarter: 2014Q1

REPORT INFORMATION
  Report Type: Spontaneous
  Country: US (occurrence: US)
  Receive Date: 20131126
  Receipt Date: 20140110
  Transmission Date: 20141002
  Serious: No
  Sender: FDA-Public Use
  Company Number: US-ELI_LILLY_AND_COMPANY-US201311007535

PATIENT
  Sex: Male
  Weight: 92.52 kg

DRUGS (9)
  1. CIALIS [Suspect]
     Indication: ERECTILE DYSFUNCTION
     Dosage: 5 MG, QD
     Route: 065
     Dates: start: 201309, end: 20131109
  2. CIALIS [Suspect]
     Indication: BENIGN PROSTATIC HYPERPLASIA
  3. LOVASTATIN [Suspect]
     Dosage: 1 DF, UNKNOWN
     Dates: end: 20131209
  4. METHOTREXATE [Concomitant]
     Dosage: 1 DF, UNKNOWN
  5. DAYPRO [Concomitant]
     Dosage: 1 DF, UNKNOWN
  6. PREDNISONE [Concomitant]
     Dosage: 1 DF, UNKNOWN
  7. FISH OIL [Concomitant]
     Dosage: 1 DF, UNKNOWN
  8. LISINOPRIL [Concomitant]
     Dosage: 1 DF, UNKNOWN
  9. TESTOSTERONE [Concomitant]
     Dosage: 1 DF, UNKNOWN

REACTIONS (2)
  - Cataract [Unknown]
  - Myalgia [Recovering/Resolving]
